FAERS Safety Report 10434523 (Version 4)
Quarter: 2014Q4

REPORT INFORMATION
  Report Type: Report from Study
  Country: US (occurrence: US)
  Receive Date: 20140905
  Receipt Date: 20141115
  Transmission Date: 20150528
  Serious: Yes (Hospitalization, Other)
  Sender: FDA-Public Use
  Company Number: US-ASTRAZENECA-2014SE28613

PATIENT
  Age: 45 Year
  Sex: Female
  Weight: 47.6 kg

DRUGS (46)
  1. SEROQUEL [Suspect]
     Active Substance: QUETIAPINE FUMARATE
     Indication: SCHIZOPHRENIA
     Route: 048
     Dates: end: 20140312
  2. SEROQUEL [Suspect]
     Active Substance: QUETIAPINE FUMARATE
     Indication: BIPOLAR DISORDER
     Dosage: AT NIGHT
     Route: 048
     Dates: start: 1997
  3. SEROQUEL [Suspect]
     Active Substance: QUETIAPINE FUMARATE
     Indication: NERVOUSNESS
     Route: 048
  4. GEODON [Suspect]
     Active Substance: ZIPRASIDONE HYDROCHLORIDE\ZIPRASIDONE MESYLATE
     Indication: NERVOUSNESS
     Dosage: AT NIGHT
     Route: 065
     Dates: start: 2000, end: 201404
  5. SEROQUEL [Suspect]
     Active Substance: QUETIAPINE FUMARATE
     Indication: NERVOUSNESS
     Route: 048
     Dates: end: 20140312
  6. SEROQUEL [Suspect]
     Active Substance: QUETIAPINE FUMARATE
     Indication: INSOMNIA
     Route: 048
     Dates: end: 20140312
  7. SEROQUEL [Suspect]
     Active Substance: QUETIAPINE FUMARATE
     Indication: BIPOLAR DISORDER
     Route: 048
     Dates: start: 1995
  8. SEROQUEL [Suspect]
     Active Substance: QUETIAPINE FUMARATE
     Indication: DEPRESSION
     Route: 048
     Dates: start: 1995
  9. SEROQUEL [Suspect]
     Active Substance: QUETIAPINE FUMARATE
     Indication: SCHIZOPHRENIA
     Dosage: AT NIGHT
     Route: 048
     Dates: start: 1997
  10. SEROQUEL [Suspect]
     Active Substance: QUETIAPINE FUMARATE
     Indication: DEPRESSION
     Route: 048
     Dates: start: 2011, end: 201104
  11. SEROQUEL [Suspect]
     Active Substance: QUETIAPINE FUMARATE
     Indication: APPETITE DISORDER
     Route: 048
     Dates: start: 2011, end: 201104
  12. SEROQUEL [Suspect]
     Active Substance: QUETIAPINE FUMARATE
     Indication: SCHIZOPHRENIA
     Route: 048
     Dates: start: 2011, end: 201104
  13. BLOOD PRESSURE MEDICATIONS [Suspect]
     Active Substance: UNSPECIFIED INGREDIENT
     Indication: BLOOD PRESSURE ABNORMAL
     Route: 065
  14. LORAZEPAM. [Concomitant]
     Active Substance: LORAZEPAM
     Indication: NERVOUSNESS
     Route: 048
     Dates: start: 2000, end: 201404
  15. SEROQUEL [Suspect]
     Active Substance: QUETIAPINE FUMARATE
     Indication: BIPOLAR DISORDER
     Route: 048
     Dates: end: 20140312
  16. SEROQUEL [Suspect]
     Active Substance: QUETIAPINE FUMARATE
     Indication: APPETITE DISORDER
     Route: 048
     Dates: end: 20140312
  17. SEROQUEL [Suspect]
     Active Substance: QUETIAPINE FUMARATE
     Indication: SCHIZOPHRENIA
     Route: 048
     Dates: start: 1995
  18. SEROQUEL [Suspect]
     Active Substance: QUETIAPINE FUMARATE
     Indication: NERVOUSNESS
     Route: 048
     Dates: start: 2005, end: 2011
  19. SEROQUEL [Suspect]
     Active Substance: QUETIAPINE FUMARATE
     Indication: BIPOLAR DISORDER
     Route: 048
     Dates: start: 2011, end: 201104
  20. SEROQUEL [Suspect]
     Active Substance: QUETIAPINE FUMARATE
     Indication: NERVOUSNESS
     Route: 048
     Dates: start: 2011, end: 201104
  21. MUSCLE RELAXERS [Suspect]
     Active Substance: UNSPECIFIED INGREDIENT
     Route: 065
  22. LORAZEPAM. [Concomitant]
     Active Substance: LORAZEPAM
     Indication: NERVOUSNESS
     Dosage: PRN
     Route: 048
  23. REMRON [Concomitant]
     Indication: SLEEP DISORDER
     Dates: start: 2000, end: 201404
  24. CLONAZEPAM. [Concomitant]
     Active Substance: CLONAZEPAM
     Indication: APPETITE DISORDER
     Dosage: BID
  25. SEROQUEL [Suspect]
     Active Substance: QUETIAPINE FUMARATE
     Indication: DEPRESSION
     Dosage: AT NIGHT
     Route: 048
     Dates: start: 1997
  26. SEROQUEL [Suspect]
     Active Substance: QUETIAPINE FUMARATE
     Indication: INSOMNIA
     Dosage: AT NIGHT
     Route: 048
     Dates: start: 1997
  27. SEROQUEL [Suspect]
     Active Substance: QUETIAPINE FUMARATE
     Indication: INSOMNIA
     Route: 048
  28. SEROQUEL [Suspect]
     Active Substance: QUETIAPINE FUMARATE
     Indication: APPETITE DISORDER
     Route: 048
     Dates: start: 2005, end: 2011
  29. SEROQUEL [Suspect]
     Active Substance: QUETIAPINE FUMARATE
     Indication: SCHIZOPHRENIA
     Route: 048
     Dates: start: 2005, end: 2011
  30. SEROQUEL [Suspect]
     Active Substance: QUETIAPINE FUMARATE
     Indication: INSOMNIA
     Route: 048
     Dates: start: 2011, end: 201104
  31. SEROQUEL [Suspect]
     Active Substance: QUETIAPINE FUMARATE
     Indication: APPETITE DISORDER
     Dosage: AT NIGHT
     Route: 048
     Dates: start: 1997
  32. SEROQUEL [Suspect]
     Active Substance: QUETIAPINE FUMARATE
     Indication: NERVOUSNESS
     Dosage: AT NIGHT
     Route: 048
     Dates: start: 1997
  33. SEROQUEL [Suspect]
     Active Substance: QUETIAPINE FUMARATE
     Indication: DEPRESSION
     Route: 048
     Dates: start: 2005, end: 2011
  34. CLONAZEPAM. [Concomitant]
     Active Substance: CLONAZEPAM
     Indication: NERVOUSNESS
     Dosage: BID
  35. SEROQUEL [Suspect]
     Active Substance: QUETIAPINE FUMARATE
     Indication: DEPRESSION
     Route: 048
     Dates: end: 20140312
  36. SEROQUEL [Suspect]
     Active Substance: QUETIAPINE FUMARATE
     Indication: APPETITE DISORDER
     Route: 048
     Dates: start: 1995
  37. SEROQUEL [Suspect]
     Active Substance: QUETIAPINE FUMARATE
     Indication: INSOMNIA
     Route: 048
     Dates: start: 1995
  38. SEROQUEL [Suspect]
     Active Substance: QUETIAPINE FUMARATE
     Indication: INSOMNIA
     Route: 048
     Dates: start: 2005, end: 2011
  39. GEODON [Suspect]
     Active Substance: ZIPRASIDONE HYDROCHLORIDE\ZIPRASIDONE MESYLATE
     Indication: APPETITE DISORDER
     Dosage: AT NIGHT
     Route: 065
     Dates: start: 2000, end: 201404
  40. SEROQUEL [Suspect]
     Active Substance: QUETIAPINE FUMARATE
     Indication: BIPOLAR DISORDER
     Route: 048
  41. SEROQUEL [Suspect]
     Active Substance: QUETIAPINE FUMARATE
     Indication: DEPRESSION
     Route: 048
  42. SEROQUEL [Suspect]
     Active Substance: QUETIAPINE FUMARATE
     Indication: APPETITE DISORDER
     Route: 048
  43. SEROQUEL [Suspect]
     Active Substance: QUETIAPINE FUMARATE
     Indication: SCHIZOPHRENIA
     Route: 048
  44. SEROQUEL [Suspect]
     Active Substance: QUETIAPINE FUMARATE
     Indication: BIPOLAR DISORDER
     Route: 048
     Dates: start: 2005, end: 2011
  45. REMRON [Concomitant]
     Indication: APPETITE DISORDER
     Dates: start: 2000, end: 201404
  46. SEROQUEL [Suspect]
     Active Substance: QUETIAPINE FUMARATE
     Indication: NERVOUSNESS
     Route: 048
     Dates: start: 1995

REACTIONS (22)
  - Weight fluctuation [Not Recovered/Not Resolved]
  - Pain in extremity [Unknown]
  - Overdose [Unknown]
  - Tremor [Not Recovered/Not Resolved]
  - Osteoarthritis [Unknown]
  - Appetite disorder [Not Recovered/Not Resolved]
  - Rheumatoid arthritis [Unknown]
  - Fibromyalgia [Not Recovered/Not Resolved]
  - Seizure [Unknown]
  - Nystagmus [Not Recovered/Not Resolved]
  - Nerve injury [Not Recovered/Not Resolved]
  - Hypertension [Not Recovered/Not Resolved]
  - Dizziness [Unknown]
  - Dementia Alzheimer^s type [Unknown]
  - Off label use [Recovered/Resolved]
  - Photopsia [Not Recovered/Not Resolved]
  - Photopsia [Not Recovered/Not Resolved]
  - Limb discomfort [Unknown]
  - Muscle twitching [Not Recovered/Not Resolved]
  - Tremor [Not Recovered/Not Resolved]
  - Oromandibular dystonia [Unknown]
  - Sciatic nerve neuropathy [Not Recovered/Not Resolved]

NARRATIVE: CASE EVENT DATE: 2005
